FAERS Safety Report 9639718 (Version 1)
Quarter: 2013Q4

REPORT INFORMATION
  Report Type: Spontaneous
  Country: US (occurrence: None)
  Receive Date: 20131021
  Receipt Date: 20131021
  Transmission Date: 20140711
  Serious: Yes (Other)
  Sender: FDA-Public Use
  Company Number: None

PATIENT
  Age: 47 Year
  Sex: Female
  Weight: 46.72 kg

DRUGS (2)
  1. ORACEA [Suspect]
     Indication: ROSACEA
     Dosage: 40 MG , 30 IMMED. RELEASE 10 DELAYED RELEASE. ??1 A DAY    1X DAY BY MOUTH
     Route: 048
     Dates: start: 201303, end: 20130917
  2. DAILY MULTI-VITAMIN [Concomitant]

REACTIONS (2)
  - Alopecia [None]
  - Gastric disorder [None]
